FAERS Safety Report 24285645 (Version 1)
Quarter: 2024Q3

REPORT INFORMATION
  Report Type: Spontaneous
  Country: FR (occurrence: FR)
  Receive Date: 20240905
  Receipt Date: 20240905
  Transmission Date: 20241017
  Serious: Yes (Hospitalization, Other)
  Sender: AUROBINDO
  Company Number: FR-AFSSAPS-MA2024001291

PATIENT
  Age: 65 Year
  Sex: Male

DRUGS (1)
  1. MEROPENEM [Suspect]
     Active Substance: MEROPENEM
     Indication: Antibiotic therapy
     Dosage: UNK
     Route: 042
     Dates: start: 202107

REACTIONS (3)
  - Drug level increased [Recovered/Resolved]
  - Delayed recovery from anaesthesia [Unknown]
  - Encephalopathy [Unknown]

NARRATIVE: CASE EVENT DATE: 20210719
